FAERS Safety Report 18471581 (Version 1)
Quarter: 2020Q4

REPORT INFORMATION
  Report Type: Spontaneous
  Country: ES (occurrence: ES)
  Receive Date: 20201106
  Receipt Date: 20201106
  Transmission Date: 20210114
  Serious: Yes (Hospitalization)
  Sender: FDA-Public Use
  Company Number: ES-BAXTER-2020BAX021837

PATIENT
  Age: 49 Year
  Sex: Female

DRUGS (2)
  1. FARMORUBICINA [Suspect]
     Active Substance: EPIRUBICIN HYDROCHLORIDE
     Indication: SARCOMA
     Dosage: 2 MG/ML SOLUTION FOR INJECTION AND FOR INFUSION, 1 VIAL OF 25 ML
     Route: 042
     Dates: start: 20200507, end: 20200629
  2. TRONOXAL 1G INYECTABLE [Suspect]
     Active Substance: IFOSFAMIDE
     Indication: SARCOMA
     Dosage: INJECTABLE, 1 VIAL
     Route: 042
     Dates: start: 20200507, end: 20200629

REACTIONS (1)
  - Psychotic disorder [Recovered/Resolved]

NARRATIVE: CASE EVENT DATE: 20200628
